FAERS Safety Report 25653479 (Version 2)
Quarter: 2025Q3

REPORT INFORMATION
  Report Type: Spontaneous
  Country: US (occurrence: US)
  Receive Date: 20250807
  Receipt Date: 20250820
  Transmission Date: 20251021
  Serious: Yes (Other)
  Sender: BRACCO
  Company Number: US-BRACCO-2025US05337

PATIENT
  Age: 70 Year
  Sex: Male

DRUGS (4)
  1. LUMASON [Suspect]
     Active Substance: SULFUR HEXAFLUORIDE
     Indication: Echocardiogram
     Route: 042
     Dates: start: 20250715, end: 20250715
  2. LUMASON [Suspect]
     Active Substance: SULFUR HEXAFLUORIDE
     Indication: Echocardiogram
     Route: 042
     Dates: start: 20250715, end: 20250715
  3. LUMASON [Suspect]
     Active Substance: SULFUR HEXAFLUORIDE
     Indication: Echocardiogram
     Route: 042
     Dates: start: 20250715, end: 20250715
  4. PLAVIX [Concomitant]
     Active Substance: CLOPIDOGREL BISULFATE

REACTIONS (4)
  - Mean arterial pressure decreased [Recovered/Resolved]
  - Respiratory rate increased [Recovered/Resolved]
  - Hypotension [Recovered/Resolved]
  - Agitation [Recovered/Resolved]

NARRATIVE: CASE EVENT DATE: 20250715
